FAERS Safety Report 18231153 (Version 1)
Quarter: 2020Q3

REPORT INFORMATION
  Report Type: Spontaneous
  Country: PT (occurrence: PT)
  Receive Date: 20200904
  Receipt Date: 20200904
  Transmission Date: 20201103
  Serious: Yes (Life-Threatening, Other)
  Sender: FDA-Public Use
  Company Number: PT-UCBSA-2020025207

PATIENT
  Age: 32 Year
  Sex: Female
  Weight: 70 kg

DRUGS (7)
  1. VITAMIN D [COLECALCIFEROL] [Concomitant]
     Active Substance: CHOLECALCIFEROL
     Indication: EPILEPSY
     Dosage: UNK
  2. KEPPRA [Suspect]
     Active Substance: LEVETIRACETAM
     Indication: SEIZURE
     Dosage: 500MG IN THE MORNING AND 1000MG IN THE EVENING, 2X/DAY (BID)
     Route: 048
     Dates: start: 201909
  3. KEPPRA [Suspect]
     Active Substance: LEVETIRACETAM
     Indication: EPILEPSY
     Dosage: 1000 MILLIGRAM, 2X/DAY (BID)
     Route: 048
     Dates: start: 201911
  4. KEPPRA [Suspect]
     Active Substance: LEVETIRACETAM
     Dosage: 1000MG IN THE MORNING AND 1500MG IN THE EVENING, 2X/DAY (BID)
     Route: 048
     Dates: start: 202001, end: 2020
  5. FOLIC ACID. [Concomitant]
     Active Substance: FOLIC ACID
     Indication: EPILEPSY
     Dosage: UNK
  6. FENOBARBITAL [Concomitant]
     Active Substance: PHENOBARBITAL
     Indication: PRODUCT USED FOR UNKNOWN INDICATION
     Dosage: UNK
  7. KEPPRA [Suspect]
     Active Substance: LEVETIRACETAM
     Dosage: 1500 MILLIGRAM, 2X/DAY (BID)
     Route: 048
     Dates: start: 202004

REACTIONS (5)
  - Product use issue [Unknown]
  - Generalised tonic-clonic seizure [Unknown]
  - Drug ineffective [Unknown]
  - Drug level below therapeutic [Unknown]
  - Petit mal epilepsy [Not Recovered/Not Resolved]

NARRATIVE: CASE EVENT DATE: 201909
